FAERS Safety Report 4392020-0 (Version None)
Quarter: 2004Q3

REPORT INFORMATION
  Report Type: 
  Country: None (occurrence: None)
  Receive Date: 20040702
  Receipt Date: 20040628
  Transmission Date: 20050211
  Serious: Yes (Other)
  Sender: FDA-Public Use
  Company Number: US-SHR-03-011420

PATIENT
  Age: 51 Year
  Sex: Female
  Weight: 99.8 kg

DRUGS (6)
  1. BETASERON [Suspect]
     Indication: MULTIPLE SCLEROSIS
     Dosage: 2 MIU, EVERY 2D, SUBCUTANEOUS
     Route: 058
     Dates: start: 20030522
  2. BETASERON [Suspect]
     Indication: MULTIPLE SCLEROSIS
     Dosage: 4 MIU, EVERY 2D, SUBCUTANEOUS
     Route: 058
  3. BETASERON [Suspect]
     Indication: MULTIPLE SCLEROSIS
     Dosage: 2 MIU, EVERY 2D, SUBCUTANEOUS
     Route: 058
  4. SARAFEM (FLUOXETINE) [Concomitant]
  5. ALBUTEROL [Concomitant]
  6. FLUOXETINE [Concomitant]

REACTIONS (6)
  - AGGRESSION [None]
  - DIZZINESS [None]
  - DYSPNOEA [None]
  - FAMILY STRESS [None]
  - IMPRISONMENT [None]
  - PHARMACEUTICAL PRODUCT COMPLAINT [None]
